FAERS Safety Report 4463077-3 (Version None)
Quarter: 2004Q3

REPORT INFORMATION
  Report Type: 
  Country: None (occurrence: None)
  Receive Date: 20040928
  Receipt Date: 20040921
  Transmission Date: 20050211
  Serious: Yes (Death)
  Sender: FDA-Public Use
  Company Number: 163-20785-04050219

PATIENT
  Age: 74 Year
  Sex: Female

DRUGS (3)
  1. THALOMID [Suspect]
     Indication: MULTIPLE MYELOMA
     Dosage: 200 MG, QHS, ORAL
     Route: 048
     Dates: start: 20030201, end: 20040601
  2. DECADRON [Concomitant]
  3. THALOMID [Suspect]

REACTIONS (3)
  - LEUKAEMIA PLASMACYTIC [None]
  - PANCYTOPENIA [None]
  - UNEVALUABLE EVENT [None]
